FAERS Safety Report 4623259-4 (Version None)
Quarter: 2005Q1

REPORT INFORMATION
  Report Type: 
  Country: None (occurrence: None)
  Receive Date: 20050330
  Receipt Date: 20050307
  Transmission Date: 20050727
  Serious: Yes (Other)
  Sender: FDA-Public Use
  Company Number: USA041184557

PATIENT
  Age: 70 Year
  Sex: Female
  Weight: 41 kg

DRUGS (14)
  1. FORTEO [Suspect]
     Indication: OSTEOPOROSIS
     Dosage: 20 UG/1 DAY
     Dates: start: 20040730
  2. LIPITOR [Concomitant]
  3. PROCRIT [Concomitant]
  4. FLECAINIDE ACETATE [Concomitant]
  5. NORVASC [Concomitant]
  6. METOPROLOL TARTRATE [Concomitant]
  7. PREDNISONE [Concomitant]
  8. FUROSEMIDE [Concomitant]
  9. ZOLOFT [Concomitant]
  10. PRILOSEC (OMEPRAZOLE RATIOPHARM) [Concomitant]
  11. OSCAL (CALCIUM CARBONATE) [Concomitant]
  12. LOPERAMIDE HCL [Concomitant]
  13. DETROL LA [Concomitant]
  14. VESICARE [Concomitant]

REACTIONS (7)
  - BLOOD ALKALINE PHOSPHATASE INCREASED [None]
  - BLOOD CALCIUM DECREASED [None]
  - BLOOD CREATININE INCREASED [None]
  - BLOOD POTASSIUM DECREASED [None]
  - BLOOD UREA INCREASED [None]
  - CLAVICLE FRACTURE [None]
  - CONDITION AGGRAVATED [None]
